FAERS Safety Report 5417727-5 (Version None)
Quarter: 2007Q3

REPORT INFORMATION
  Report Type: 
  Country: None (occurrence: None)
  Receive Date: 20070815
  Receipt Date: 20070815
  Transmission Date: 20080115
  Serious: Yes (Hospitalization)
  Sender: FDA-Public Use
  Company Number: None

PATIENT
  Sex: Male
  Weight: 86.1834 kg

DRUGS (10)
  1. TYSABRI [Suspect]
     Indication: MULTIPLE SCLEROSIS
     Dosage: IV INFUSION ONCE A MONTH
     Route: 042
     Dates: start: 20061107
  2. LEXAPRO [Concomitant]
  3. EXELON [Concomitant]
  4. PROVIGIL [Concomitant]
  5. ASPIRIN [Concomitant]
  6. NEURONTIN [Concomitant]
  7. ZOCOR [Concomitant]
  8. DETROL [Concomitant]
  9. ALLEGRA [Concomitant]
  10. VITAMIN TAB [Concomitant]

REACTIONS (1)
  - ASTHENIA [None]
